FAERS Safety Report 25059538 (Version 1)
Quarter: 2025Q1

REPORT INFORMATION
  Report Type: Spontaneous
  Country: ES (occurrence: ES)
  Receive Date: 20250310
  Receipt Date: 20250310
  Transmission Date: 20250408
  Serious: Yes (Disabling, Other)
  Sender: BIOCODEX
  Company Number: ES-BIOCODEX2-2025000226

PATIENT
  Age: 19 Year
  Sex: Female

DRUGS (4)
  1. STIRIPENTOL [Suspect]
     Active Substance: STIRIPENTOL
     Indication: Epilepsy
     Route: 065
  2. CLOBAZAM [Suspect]
     Active Substance: CLOBAZAM
     Indication: Epilepsy
     Route: 065
  3. VALPROIC ACID [Suspect]
     Active Substance: VALPROIC ACID
     Indication: Epilepsy
     Route: 065
  4. CANNABIDIOL [Suspect]
     Active Substance: CANNABIDIOL
     Indication: Epilepsy

REACTIONS (7)
  - Bradykinesia [Unknown]
  - Torticollis [Unknown]
  - Mood swings [Unknown]
  - Impulsive behaviour [Unknown]
  - Aggression [Unknown]
  - Hallucination, visual [Unknown]
  - Off label use [Unknown]
